FAERS Safety Report 8897850 (Version 1)
Quarter: 2012Q4

REPORT INFORMATION
  Report Type: 
  Country: US (occurrence: US)
  Receive Date: 20121109
  Receipt Date: 20121109
  Transmission Date: 20130627
  Serious: Yes (Other)
  Sender: FDA-Public Use
  Company Number: US-ELI_LILLY_AND_COMPANY-US201211001529

PATIENT
  Sex: Female

DRUGS (1)
  1. EFFIENT [Suspect]
     Indication: THROMBOSIS IN DEVICE

REACTIONS (3)
  - Bone marrow failure [Unknown]
  - Haemoglobin decreased [Unknown]
  - Dyspnoea [Unknown]
